APPROVED DRUG PRODUCT: RANITIDINE HYDROCHLORIDE
Active Ingredient: RANITIDINE HYDROCHLORIDE
Strength: EQ 300MG BASE
Dosage Form/Route: TABLET;ORAL
Application: A074864 | Product #002
Applicant: WATSON LABORATORIES INC
Approved: Oct 20, 1997 | RLD: No | RS: No | Type: DISCN